FAERS Safety Report 5146303-7 (Version None)
Quarter: 2006Q4

REPORT INFORMATION
  Report Type: 
  Country: None (occurrence: None)
  Receive Date: 20061108
  Receipt Date: 20060927
  Transmission Date: 20070319
  Serious: Yes (Other)
  Sender: FDA-Public Use
  Company Number: CA-ELI_LILLY_AND_COMPANY-CA200610000441

PATIENT
  Age: 13 Year
  Sex: Male
  Weight: 54.421 kg

DRUGS (2)
  1. STRATTERA [Suspect]
     Indication: ATTENTION DEFICIT/HYPERACTIVITY DISORDER
     Dosage: 25 MG, UNK
     Dates: start: 20051001, end: 20060718
  2. ADDERALL 10 [Concomitant]
     Dosage: UNK, UNK
     Dates: end: 20060101

REACTIONS (2)
  - HYPOMANIA [None]
  - PSYCHOTIC DISORDER [None]
